FAERS Safety Report 15464100 (Version 1)
Quarter: 2018Q4

REPORT INFORMATION
  Report Type: Report from Study
  Country: US (occurrence: US)
  Receive Date: 20181004
  Receipt Date: 20181004
  Transmission Date: 20190204
  Serious: Yes (Hospitalization)
  Sender: FDA-Public Use
  Company Number: US-SA-2018SA268608

PATIENT
  Age: 39 Year
  Sex: Male

DRUGS (1)
  1. INSULIN GLARGINE [Suspect]
     Active Substance: INSULIN GLARGINE
     Indication: TYPE 1 DIABETES MELLITUS
     Dosage: UNK, UNK
     Route: 058

REACTIONS (8)
  - Product dose omission [Unknown]
  - Weight increased [Not Recovered/Not Resolved]
  - Ketoacidosis [Recovered/Resolved]
  - Fatigue [Not Recovered/Not Resolved]
  - Respiration abnormal [Recovered/Resolved]
  - Malaise [Not Recovered/Not Resolved]
  - Unevaluable event [Recovered/Resolved]
  - Pain [Recovered/Resolved]

NARRATIVE: CASE EVENT DATE: 20180101
